FAERS Safety Report 5046521-2 (Version None)
Quarter: 2006Q2

REPORT INFORMATION
  Report Type: 
  Country: None (occurrence: None)
  Receive Date: 20060630
  Receipt Date: 20060620
  Transmission Date: 20061013
  Serious: Yes (Other)
  Sender: FDA-Public Use
  Company Number: 2006075098

PATIENT
  Age: 23 Year
  Sex: Male
  Weight: 73.2 kg

DRUGS (13)
  1. ATARAX [Suspect]
     Indication: PROCEDURAL PAIN
     Dosage: 25 MG (25 MG,QD; DAILY), INTRAMUSCULAR
     Route: 030
     Dates: start: 20060525, end: 20060525
  2. PENTAZOCINE LACTATE [Suspect]
     Indication: PROCEDURAL PAIN
     Dosage: 15 MG (15 MG, QD; DAILY), INTRAMUSCULAR
     Route: 030
     Dates: start: 20060525, end: 20060525
  3. ISALON (ALDIOXA) [Concomitant]
  4. LEVOFLOXACIN [Concomitant]
  5. FLUMETHOLON (FLUOROMETHOLONE) [Concomitant]
  6. ISOZOL (THIAMYLAL SODIUM) [Concomitant]
  7. ESTAZOLAM [Concomitant]
  8. CEFOTIAM HYDROCHLORIDE [Concomitant]
  9. PRIMPERAN TAB [Concomitant]
  10. DASEN (SERRAPEPTASE) [Concomitant]
  11. CEFDINIR [Concomitant]
  12. ALL OTHER THERAPEUTIC PRODUCTS [Concomitant]
  13. SUCCIN (SUXAMETHONIUM CHLORIDE) [Concomitant]

REACTIONS (7)
  - ERYTHEMA [None]
  - INJECTION SITE SWELLING [None]
  - MYOSITIS [None]
  - OEDEMA PERIPHERAL [None]
  - PAIN IN EXTREMITY [None]
  - SENSORY DISTURBANCE [None]
  - SKIN WARM [None]
